FAERS Safety Report 10055865 (Version 2)
Quarter: 2014Q2

REPORT INFORMATION
  Report Type: Spontaneous
  Country: GB (occurrence: GB)
  Receive Date: 20140403
  Receipt Date: 20140403
  Transmission Date: 20141212
  Serious: Yes (Hospitalization)
  Sender: FDA-Public Use
  Company Number: PHHY2014GB029145

PATIENT
  Age: 22 Year
  Sex: Male

DRUGS (2)
  1. CLOZAPINE [Suspect]
     Indication: SCHIZOPHRENIA
     Dosage: 300 MG
  2. FLUPENTIXOL [Suspect]
     Dosage: 80 MG, ONCE/SINGLE
     Route: 030

REACTIONS (14)
  - Neuroleptic malignant syndrome [Unknown]
  - Coma [Unknown]
  - Muscle rigidity [Unknown]
  - Hyperthermia [Unknown]
  - Hypotension [Unknown]
  - Hypertonia [Unknown]
  - Pyrexia [Unknown]
  - Unresponsive to stimuli [Unknown]
  - Compartment syndrome [Unknown]
  - Peripheral swelling [Unknown]
  - Brachial plexus injury [Unknown]
  - Muscle atrophy [Unknown]
  - Muscular weakness [Unknown]
  - Muscle necrosis [Unknown]
